FAERS Safety Report 12094869 (Version 1)
Quarter: 2016Q1

REPORT INFORMATION
  Report Type: Spontaneous
  Country: IT (occurrence: IT)
  Receive Date: 20160219
  Receipt Date: 20160219
  Transmission Date: 20160526
  Serious: No
  Sender: FDA-Public Use
  Company Number: IT-PERNIX THERAPEUTICS-2015PT000138

PATIENT

DRUGS (7)
  1. ISOCEF [Suspect]
     Active Substance: CEFTIBUTEN
     Indication: DYSPHAGIA
  2. LASIX [Concomitant]
     Active Substance: FUROSEMIDE
     Indication: CHRONIC KIDNEY DISEASE
     Dosage: 25 MG, UNK
     Route: 048
  3. LEVEMIR [Concomitant]
     Active Substance: INSULIN DETEMIR
     Indication: DIABETES MELLITUS
  4. GLURENOR [Concomitant]
     Active Substance: GLIQUIDONE
     Indication: DIABETES MELLITUS
     Dosage: 30 UNK, UNK
     Route: 048
  5. ISOCEF [Suspect]
     Active Substance: CEFTIBUTEN
     Indication: TRACHEITIS
     Dosage: 400 MG, QD
     Route: 048
     Dates: start: 20141228, end: 20141231
  6. NOVOMIX [Concomitant]
     Active Substance: INSULIN ASPART
     Indication: DIABETES MELLITUS
  7. CARDIRENE [Concomitant]
     Active Substance: ASPIRIN DL-LYSINE
     Indication: HYPERTENSION
     Dosage: 75 MG, UNK
     Route: 048

REACTIONS (2)
  - Urticaria [Recovered/Resolved]
  - Pruritus generalised [Recovered/Resolved]

NARRATIVE: CASE EVENT DATE: 20150102
